FAERS Safety Report 4797077-0 (Version None)
Quarter: 2005Q4

REPORT INFORMATION
  Report Type: 
  Country: None (occurrence: None)
  Receive Date: 20051011
  Receipt Date: 20051011
  Transmission Date: 20060501
  Serious: Yes (Other)
  Sender: FDA-Public Use
  Company Number: None

PATIENT
  Age: 84 Year
  Sex: Female
  Weight: 70 kg

DRUGS (7)
  1. CLADRIBINE [Suspect]
     Indication: HAIRY CELL LEUKAEMIA
     Dosage: 6 MG DAILY IV
     Route: 042
     Dates: start: 20050422, end: 20050429
  2. CEFEPIME [Suspect]
     Indication: SEPSIS
     Dosage: 2 GRAM EVERY 8 HOURS IV
     Route: 042
     Dates: start: 20050418, end: 20050425
  3. TOBRAMYCIN [Concomitant]
  4. VANCOMYCIN [Concomitant]
  5. ATENOLOL [Concomitant]
  6. INDAPAMIDE [Concomitant]
  7. ASPIRIN [Concomitant]

REACTIONS (6)
  - DIALYSIS [None]
  - NEPHRITIS ALLERGIC [None]
  - NEPHRITIS INTERSTITIAL [None]
  - PYREXIA [None]
  - RASH [None]
  - RENAL FAILURE ACUTE [None]
